FAERS Safety Report 18109258 (Version 1)
Quarter: 2020Q3

REPORT INFORMATION
  Report Type: Spontaneous
  Country: US (occurrence: US)
  Receive Date: 20200804
  Receipt Date: 20200804
  Transmission Date: 20201103
  Serious: Yes (Other)
  Sender: FDA-Public Use
  Company Number: None

PATIENT
  Age: 32 Year
  Sex: Female
  Weight: 117.9 kg

DRUGS (2)
  1. AIMOVIG [Concomitant]
     Active Substance: ERENUMAB-AOOE
     Dates: start: 20200124, end: 20200720
  2. AIMOVIG [Suspect]
     Active Substance: ERENUMAB-AOOE
     Indication: MIGRAINE
     Route: 058
     Dates: start: 20200124, end: 20200720

REACTIONS (4)
  - Abortion spontaneous [None]
  - Therapy cessation [None]
  - Maternal exposure during pregnancy [None]
  - Foetal exposure during pregnancy [None]

NARRATIVE: CASE EVENT DATE: 20200804
